FAERS Safety Report 10994975 (Version 3)
Quarter: 2015Q2

REPORT INFORMATION
  Report Type: Spontaneous
  Country: CN (occurrence: CN)
  Receive Date: 20150407
  Receipt Date: 20150519
  Transmission Date: 20150821
  Serious: Yes (Other)
  Sender: FDA-Public Use
  Company Number: CN-GLAXOSMITHKLINE-CN2015GSK034957

PATIENT
  Age: 38 Year
  Sex: Female
  Weight: 60 kg

DRUGS (1)
  1. SERETIDE [Suspect]
     Active Substance: FLUTICASONE FUROATE\SALMETEROL XINAFOATE
     Indication: BRONCHITIS CHRONIC
     Dosage: 1 PUFF(S), QD
     Route: 055
     Dates: start: 20150307, end: 20150315

REACTIONS (25)
  - Pharyngeal oedema [Recovered/Resolved]
  - Angioedema [Recovered/Resolved]
  - Drug hypersensitivity [Recovered/Resolved]
  - Off label use [Recovered/Resolved]
  - Dysphagia [Recovered/Resolved]
  - Swollen tongue [Recovered/Resolved]
  - Submaxillary gland enlargement [Recovered/Resolved]
  - Tongue disorder [Recovered/Resolved]
  - Cough [Recovered/Resolved]
  - Respiratory depression [Recovered/Resolved]
  - Dermatitis allergic [Recovered/Resolved]
  - Skin swelling [Recovered/Resolved]
  - Swelling face [Recovered/Resolved]
  - Oropharyngeal discomfort [Recovered/Resolved]
  - Hypoaesthesia oral [Recovered/Resolved]
  - Oropharyngeal swelling [Recovered/Resolved]
  - Aphasia [Recovered/Resolved]
  - Dyspnoea [Recovered/Resolved]
  - Rhinalgia [Recovered/Resolved]
  - Oropharyngeal pain [Unknown]
  - Drooling [Recovered/Resolved]
  - Oedema [Recovered/Resolved]
  - Jaw disorder [Recovered/Resolved]
  - Facial pain [Recovered/Resolved]
  - Pharyngeal oedema [Recovered/Resolved]

NARRATIVE: CASE EVENT DATE: 201503
